FAERS Safety Report 5158203-7 (Version None)
Quarter: 2006Q4

REPORT INFORMATION
  Report Type: 
  Country: None (occurrence: None)
  Receive Date: 20061121
  Receipt Date: 20061121
  Transmission Date: 20070319
  Serious: No
  Sender: FDA-Public Use
  Company Number: None

PATIENT
  Age: 81 Year
  Sex: Male
  Weight: 100.6985 kg

DRUGS (1)
  1. KCL TAB [Suspect]
     Indication: HYPOKALAEMIA
     Dosage: GENERIC KCL DAILY PO
     Route: 048
     Dates: start: 20061101, end: 20061107

REACTIONS (1)
  - RASH ERYTHEMATOUS [None]
